FAERS Safety Report 6233353-2 (Version None)
Quarter: 2009Q2

REPORT INFORMATION
  Report Type: 
  Country: None (occurrence: None)
  Receive Date: 20090616
  Receipt Date: 20090616
  Transmission Date: 20091009
  Serious: Yes (Hospitalization)
  Sender: FDA-Public Use
  Company Number: None

PATIENT
  Sex: Male
  Weight: 47.4 kg

DRUGS (6)
  1. DAUNORUBICIN HCL [Suspect]
     Dosage: 166 MG
  2. METHOTREXATE [Suspect]
     Dosage: 15 MG
  3. PEG-L-ASPARAGINASE (K-H) [Suspect]
     Dosage: 4650 IU
  4. PREDNISONE TAB [Suspect]
     Dosage: 2835 MG
  5. VINCRISTINE SULFATE [Suspect]
     Dosage: 8 MG
  6. CYTARABINE [Suspect]

REACTIONS (5)
  - CONSTIPATION [None]
  - GASTROINTESTINAL HAEMORRHAGE [None]
  - HYPOPHAGIA [None]
  - INTESTINAL PERFORATION [None]
  - PNEUMOPERITONEUM [None]
